FAERS Safety Report 8127947-7 (Version None)
Quarter: 2012Q1

REPORT INFORMATION
  Report Type: 
  Country: None (occurrence: None)
  Receive Date: 20120210
  Receipt Date: 20120201
  Transmission Date: 20120608
  Serious: No
  Sender: FDA-Public Use
  Company Number: US-BIOGENIDEC-2012BI004053

PATIENT
  Age: 69 Year
  Sex: Female

DRUGS (4)
  1. AVONEX [Suspect]
     Route: 030
     Dates: start: 20030101
  2. GABAPENTIN [Concomitant]
     Indication: NEURALGIA
  3. TIZANIDINE HCL [Concomitant]
     Indication: MUSCLE SPASTICITY
  4. AVONEX [Suspect]
     Indication: MULTIPLE SCLEROSIS
     Route: 030
     Dates: start: 20000101, end: 20030101

REACTIONS (2)
  - MULTIPLE SCLEROSIS RELAPSE [None]
  - BACK PAIN [None]
